FAERS Safety Report 9839823 (Version 1)
Quarter: 2014Q1

REPORT INFORMATION
  Report Type: Spontaneous
  Country: AT (occurrence: AT)
  Receive Date: 20140124
  Receipt Date: 20140124
  Transmission Date: 20141002
  Serious: Yes (Other)
  Sender: FDA-Public Use
  Company Number: AT-BRISTOL-MYERS SQUIBB COMPANY-20044673

PATIENT
  Age: 60 Year
  Sex: Female

DRUGS (1)
  1. METFORMIN HCL [Suspect]

REACTIONS (16)
  - Hypertension [Unknown]
  - Dyslipidaemia [Unknown]
  - Microalbuminuria [Unknown]
  - Renal impairment [Unknown]
  - Diabetic retinopathy [Unknown]
  - Diabetic neuropathy [Unknown]
  - Hepatomegaly [Unknown]
  - Hepatic steatosis [Unknown]
  - Osteoarthritis [Unknown]
  - Cholecystectomy [Unknown]
  - Sleep apnoea syndrome [Unknown]
  - Cardiomegaly [Unknown]
  - Pulmonary congestion [Unknown]
  - Adrenal adenoma [Unknown]
  - Leukocyturia [Unknown]
  - Nitrite urine present [Unknown]
